FAERS Safety Report 13896554 (Version 1)
Quarter: 2017Q3

REPORT INFORMATION
  Report Type: Spontaneous
  Country: CN (occurrence: CN)
  Receive Date: 20170823
  Receipt Date: 20170823
  Transmission Date: 20171127
  Serious: Yes (Other)
  Sender: FDA-Public Use
  Company Number: CN-GUERBET-CN-20170038

PATIENT

DRUGS (4)
  1. GELFOAM [Suspect]
     Active Substance: GELATIN\THROMBIN HUMAN
     Indication: THERAPEUTIC EMBOLISATION
     Route: 013
  2. OXALIPLATIN. [Suspect]
     Active Substance: OXALIPLATIN
     Indication: THERAPEUTIC EMBOLISATION
     Route: 013
  3. LIPIODOL ULTRA-FLUIDE [Suspect]
     Active Substance: ETHIODIZED OIL
     Indication: THERAPEUTIC EMBOLISATION
     Route: 013
  4. PIRARUBICIN [Suspect]
     Active Substance: PIRARUBICIN
     Indication: THERAPEUTIC EMBOLISATION
     Route: 013

REACTIONS (2)
  - Shock haemorrhagic [Recovering/Resolving]
  - Product use in unapproved indication [Recovering/Resolving]
